FAERS Safety Report 5332227-9 (Version None)
Quarter: 2007Q2

REPORT INFORMATION
  Report Type: 
  Country: None (occurrence: None)
  Receive Date: 20070523
  Receipt Date: 20070514
  Transmission Date: 20071010
  Serious: Yes (Hospitalization)
  Sender: FDA-Public Use
  Company Number: HQWYE668208JAN07

PATIENT
  Sex: Male
  Weight: 84.4 kg

DRUGS (6)
  1. RAPAMUNE [Suspect]
     Indication: PROPHYLAXIS AGAINST TRANSPLANT REJECTION
     Route: 048
     Dates: start: 20050516, end: 20050516
  2. RAPAMUNE [Suspect]
     Indication: IMMUNOSUPPRESSANT DRUG THERAPY
     Route: 048
     Dates: start: 20050517, end: 20050619
  3. RAPAMUNE [Suspect]
     Route: 048
     Dates: start: 20050620, end: 20051017
  4. RAPAMUNE [Suspect]
     Route: 048
     Dates: start: 20051018, end: 20051122
  5. RAPAMUNE [Suspect]
     Route: 048
     Dates: start: 20051123, end: 20051220
  6. RAPAMUNE [Suspect]
     Route: 048
     Dates: start: 20051221, end: 20060223

REACTIONS (1)
  - KIDNEY TRANSPLANT REJECTION [None]
